FAERS Safety Report 9479070 (Version 1)
Quarter: 2013Q3

REPORT INFORMATION
  Report Type: Spontaneous
  Country: US (occurrence: US)
  Receive Date: 20130827
  Receipt Date: 20130827
  Transmission Date: 20140515
  Serious: Yes (Other)
  Sender: FDA-Public Use
  Company Number: US-ROXANE LABORATORIES, INC.-2013-RO-01405RO

PATIENT
  Age: 37 Year
  Sex: Female

DRUGS (3)
  1. NAPROXEN [Suspect]
     Indication: MIGRAINE
     Dosage: 440 MG
  2. SUMATRIPTAN [Suspect]
     Indication: MIGRAINE
     Dosage: 200 MG
  3. SUMATRIPTAN [Suspect]
     Dosage: 200 MG

REACTIONS (2)
  - Colitis ischaemic [Recovered/Resolved]
  - Gastric haemorrhage [Recovered/Resolved]
